FAERS Safety Report 10567920 (Version 4)
Quarter: 2018Q2

REPORT INFORMATION
  Report Type: Report from Study
  Country: JP (occurrence: JP)
  Receive Date: 20141106
  Receipt Date: 20180423
  Transmission Date: 20180711
  Serious: Yes (Other)
  Sender: FDA-Public Use
  Company Number: JP-AMGEN-JPNCT2014085922

PATIENT
  Age: 4 Year
  Sex: Female
  Weight: 13 kg

DRUGS (12)
  1. FILGRASTIM [Suspect]
     Active Substance: FILGRASTIM
     Indication: NEUROBLASTOMA
     Dosage: 64 MCG, UNK
     Route: 058
     Dates: start: 20141017, end: 20141021
  2. TECELEUKIN [Suspect]
     Active Substance: TECELEUKIN
     Indication: NEUROBLASTOMA
     Dosage: UNK
     Route: 041
  3. LOXOPROFEN SODIUM [Concomitant]
     Active Substance: LOXOPROFEN SODIUM
     Indication: PYREXIA
     Dosage: 13 MG, PRN
     Route: 048
     Dates: start: 20141021, end: 20141023
  4. LOXOPROFEN SODIUM HYDRATE [Suspect]
     Active Substance: LOXOPROFEN SODIUM DIHYDRATE
     Indication: PYREXIA
     Dosage: 13 MG, PRN
     Route: 048
     Dates: start: 20141021, end: 20141023
  5. BAKTAR [Concomitant]
     Active Substance: SULFAMETHOXAZOLE\TRIMETHOPRIM
     Indication: PNEUMOCYSTIS JIROVECII PNEUMONIA
     Dosage: 2.6 G, 2X/WEEK
     Route: 048
     Dates: start: 20141010
  6. PICOSULFATE DE SODIUM [Concomitant]
     Indication: CONSTIPATION
     Dosage: 6 GTT, PRN
     Route: 048
     Dates: start: 20141021, end: 20141021
  7. MORPHINE HYDROCHLORIDE TRIHYDRATE [Suspect]
     Active Substance: MORPHINE HYDROCHLORIDE
     Indication: PAIN
     Dosage: 10 MG, UNK
     Route: 042
     Dates: start: 20141020, end: 20141021
  8. MIRIMOSTIM [Concomitant]
     Active Substance: MIRIMOSTIM
     Indication: NEUROBLASTOMA
     Dosage: 10 MG, UNK
     Route: 065
     Dates: start: 20141017, end: 20141021
  9. ATARAX-P [Concomitant]
     Active Substance: HYDROXYZINE HYDROCHLORIDE
     Indication: ALLERGY PROPHYLAXIS
     Dosage: 30 MG, QID
     Route: 042
     Dates: start: 20141020, end: 20141029
  10. PICOSULFATE NA [Concomitant]
     Active Substance: SODIUM PICOSULFATE
     Indication: CONSTIPATION
     Dosage: 6 GTT, PRN
     Route: 048
     Dates: start: 20141021, end: 20141021
  11. ACELIO [Concomitant]
     Active Substance: ACETAMINOPHEN
     Indication: PYREXIA
     Dosage: 520 MG, QID
     Route: 042
     Dates: start: 20141020, end: 20141028
  12. MORPHINE HYDROCHLORIDE [Concomitant]
     Active Substance: MORPHINE HYDROCHLORIDE
     Indication: PAIN
     Dosage: 10 MG, UNK
     Route: 042
     Dates: start: 20141020, end: 20141021

REACTIONS (11)
  - Aspartate aminotransferase increased [Recovered/Resolved]
  - Pain [Recovered/Resolved]
  - Pyrexia [Unknown]
  - Hypoxia [Recovered/Resolved]
  - Decreased appetite [Recovered/Resolved]
  - Constipation [Recovered/Resolved]
  - Vomiting [Recovered/Resolved]
  - Alanine aminotransferase increased [Recovered/Resolved]
  - Blood bilirubin increased [Recovered/Resolved]
  - Hypoalbuminaemia [Recovered/Resolved]
  - Peripheral sensory neuropathy [Unknown]

NARRATIVE: CASE EVENT DATE: 20141020
